FAERS Safety Report 6082446-1 (Version None)
Quarter: 2009Q1

REPORT INFORMATION
  Report Type: 
  Country: None (occurrence: None)
  Receive Date: 20090130
  Receipt Date: 20080514
  Transmission Date: 20090719
  Serious: Yes (Other)
  Sender: FDA-Public Use
  Company Number: 8032626

PATIENT
  Age: 55 Year
  Sex: Male
  Weight: 104.5 kg

DRUGS (8)
  1. KEPPRA [Suspect]
     Indication: CONVULSION
     Dosage: 2000 MG PO
     Route: 048
     Dates: start: 20080101
  2. KEPPRA [Suspect]
     Indication: FISTULA
     Dosage: 2000 MG PO
     Route: 048
     Dates: start: 20080101
  3. KEPPRA [Suspect]
     Indication: CONVULSION
     Dosage: 1500 MG PO
     Route: 048
  4. KEPPRA [Suspect]
     Indication: FISTULA
     Dosage: 1500 MG PO
     Route: 048
  5. KEPPRA [Suspect]
     Indication: CONVULSION
     Dosage: 500 MG PO
     Route: 048
  6. KEPPRA [Suspect]
     Indication: FISTULA
     Dosage: 500 MG PO
     Route: 048
  7. COUMADIN [Concomitant]
  8. LORAZEPAM [Concomitant]

REACTIONS (3)
  - AGGRESSION [None]
  - EMOTIONAL DISORDER [None]
  - SUICIDAL IDEATION [None]
